FAERS Safety Report 8825864 (Version 1)
Quarter: 2012Q4

REPORT INFORMATION
  Report Type: Report from Study
  Country: JP (occurrence: JP)
  Receive Date: 20121005
  Receipt Date: 20121005
  Transmission Date: 20130627
  Serious: Yes (Hospitalization)
  Sender: FDA-Public Use
  Company Number: JP-ASTELLAS-2012JP009060

PATIENT
  Age: 28 Year
  Sex: Female
  Weight: 53 kg

DRUGS (12)
  1. TACROLIMUS CAPSULES [Suspect]
     Indication: LUPUS NEPHRITIS
     Dosage: 3 mg, Unknown/D
     Route: 048
     Dates: start: 20080206
  2. TACROLIMUS CAPSULES [Suspect]
     Dosage: 2 mg, Unknown/D
     Route: 048
     Dates: start: 20070906, end: 20080205
  3. PREDNISOLONE [Concomitant]
     Indication: LUPUS NEPHRITIS
     Dosage: UNK
     Route: 048
  4. WARFARIN [Concomitant]
     Dosage: 2 mg, Unknown/D
     Route: 048
     Dates: end: 20071016
  5. WARFARIN [Concomitant]
     Dosage: 2.5 mg, Unknown/D
     Route: 048
     Dates: start: 20071017
  6. WARFARIN [Concomitant]
     Dosage: 2 mg, Unknown/D
     Route: 048
     Dates: end: 20120828
  7. BONALON [Concomitant]
     Indication: PROPHYLAXIS
     Dosage: 35 mg, Weekly
     Route: 048
  8. PURSENNID [Concomitant]
     Dosage: 24 mg, Unknown/D
     Route: 048
     Dates: end: 20071001
  9. PURSENNID [Concomitant]
     Dosage: 24 mg, Unknown/D
     Route: 048
     Dates: start: 20080318, end: 20080401
  10. ZANTAC [Concomitant]
     Indication: PROPHYLAXIS
     Dosage: 150 mg, Unknown/D
     Route: 048
     Dates: end: 20100525
  11. ZANTAC [Concomitant]
     Dosage: 75 mg, Unknown/D
     Route: 048
     Dates: start: 20110309
  12. GASTER [Concomitant]
     Indication: PROPHYLAXIS
     Dosage: 10 mg, Unknown/D
     Route: 048
     Dates: start: 20100526, end: 20110308

REACTIONS (2)
  - Haemorrhagic ovarian cyst [Recovered/Resolved]
  - Pancreatic neoplasm [Recovered/Resolved]
